FAERS Safety Report 17128340 (Version 1)
Quarter: 2019Q4

REPORT INFORMATION
  Report Type: Spontaneous
  Country: US (occurrence: US)
  Receive Date: 20191209
  Receipt Date: 20191209
  Transmission Date: 20200122
  Serious: No
  Sender: FDA-Public Use
  Company Number: US-UCBSA-2017006281

PATIENT
  Sex: Female
  Weight: 88 kg

DRUGS (1)
  1. VIMPAT [Suspect]
     Active Substance: LACOSAMIDE
     Indication: SEIZURE
     Dosage: TITRATION 100 MG MORNING
     Dates: start: 20161225

REACTIONS (1)
  - Feeling drunk [Recovered/Resolved]
